FAERS Safety Report 8029419-7 (Version None)
Quarter: 2012Q1

REPORT INFORMATION
  Report Type: 
  Country: None (occurrence: None)
  Receive Date: 20120106
  Receipt Date: 20120102
  Transmission Date: 20120608
  Serious: Yes (Other)
  Sender: FDA-Public Use
  Company Number: FR-ASTRAZENECA-2011SE74178

PATIENT
  Age: 22845 Day
  Sex: Female

DRUGS (5)
  1. ZOLPIDEM [Concomitant]
     Indication: INSOMNIA
     Route: 048
  2. QUETIAPINE FUMARATE [Suspect]
     Indication: BIPOLAR I DISORDER
     Dosage: DOSE PROGRESSIVELY INCREASED FROM 50 MG PER DAY TO 300 MG PER DAY
     Route: 048
     Dates: start: 20111119, end: 20111122
  3. XANAX [Concomitant]
     Indication: ANXIETY
     Route: 048
  4. VALDOXAN [Concomitant]
     Indication: MAJOR DEPRESSION
     Route: 048
  5. DONORMYL [Concomitant]
     Indication: INSOMNIA
     Route: 048

REACTIONS (1)
  - PHLEBITIS SUPERFICIAL [None]
